FAERS Safety Report 19499551 (Version 1)
Quarter: 2021Q3

REPORT INFORMATION
  Report Type: Spontaneous
  Country: US (occurrence: US)
  Receive Date: 20210707
  Receipt Date: 20210707
  Transmission Date: 20211014
  Serious: No
  Sender: FDA-Public Use
  Company Number: US-ELI_LILLY_AND_COMPANY-US202106004809

PATIENT
  Sex: Female

DRUGS (3)
  1. NOVOLIN R [Concomitant]
     Active Substance: INSULIN HUMAN
  2. INSULIN LISPRO [Suspect]
     Active Substance: INSULIN LISPRO
     Indication: TYPE 2 DIABETES MELLITUS
     Dosage: UNK UNK, OTHER (SLIDING SCLAE BEFORE MEALS)
     Route: 058
  3. OZEMPIC [Concomitant]
     Active Substance: SEMAGLUTIDE
     Indication: TYPE 2 DIABETES MELLITUS

REACTIONS (1)
  - Incorrect dose administered [Unknown]
